FAERS Safety Report 7215577-0 (Version None)
Quarter: 2011Q2

REPORT INFORMATION
  Report Type: 
  Country: None (occurrence: None)
  Receive Date: 20110104
  Receipt Date: 20110104
  Transmission Date: 20111010
  Serious: Yes (Other)
  Sender: FDA-Public Use
  Company Number: None

PATIENT
  Sex: Female
  Weight: 99.7913 kg

DRUGS (3)
  1. LEVAQUIN [Suspect]
     Indication: INFECTION
     Dosage: 1 1 TIME A DY
     Dates: start: 20101011, end: 20101026
  2. LORTAB [Suspect]
     Indication: PAIN
     Dosage: 2 TWCE A DAY
     Dates: start: 20101011, end: 20101026
  3. DARVOCET [Suspect]

REACTIONS (9)
  - INSOMNIA [None]
  - MYALGIA [None]
  - ACTIVITIES OF DAILY LIVING IMPAIRED [None]
  - SUICIDAL IDEATION [None]
  - MOVEMENT DISORDER [None]
  - ANAEMIA [None]
  - PAIN [None]
  - DYSSTASIA [None]
  - ILL-DEFINED DISORDER [None]
